FAERS Safety Report 23284165 (Version 3)
Quarter: 2025Q2

REPORT INFORMATION
  Report Type: Report from Study
  Country: US (occurrence: US)
  Receive Date: 20231211
  Receipt Date: 20250603
  Transmission Date: 20250716
  Serious: Yes (Hospitalization, Other)
  Sender: TAKEDA
  Company Number: US-TAKEDA-2023TUS057106

PATIENT
  Sex: Female

DRUGS (36)
  1. PONATINIB [Suspect]
     Active Substance: PONATINIB
     Indication: Chronic myeloid leukaemia
     Dosage: 15 MILLIGRAM, QD
     Dates: start: 20230621
  2. PONATINIB [Suspect]
     Active Substance: PONATINIB
     Indication: Chronic myeloid leukaemia (in remission)
     Dosage: 15 MILLIGRAM, QD
  3. PONATINIB [Suspect]
     Active Substance: PONATINIB
     Dosage: 15 MILLIGRAM, QD
  4. PONATINIB [Suspect]
     Active Substance: PONATINIB
     Dosage: 15 MILLIGRAM, QD
  5. ACYCLOVIR SODIUM [Concomitant]
     Active Substance: ACYCLOVIR SODIUM
  6. BACTRIM DS [Concomitant]
     Active Substance: SULFAMETHOXAZOLE\TRIMETHOPRIM
  7. LEVOTHYROXINE SODIUM [Concomitant]
     Active Substance: LEVOTHYROXINE SODIUM
  8. WELLBUTRIN SR [Concomitant]
     Active Substance: BUPROPION HYDROCHLORIDE
  9. NEULASTA [Concomitant]
     Active Substance: PEGFILGRASTIM
  10. ALLEGRA [Concomitant]
     Active Substance: FEXOFENADINE HYDROCHLORIDE
  11. PEPCID [Concomitant]
     Active Substance: FAMOTIDINE
  12. VITAMIN D [Concomitant]
     Active Substance: VITAMIN D NOS
  13. ALBUTEROL [Concomitant]
     Active Substance: ALBUTEROL
  14. XANAX [Concomitant]
     Active Substance: ALPRAZOLAM
  15. TRAZODONE HCL [Concomitant]
     Active Substance: TRAZODONE HYDROCHLORIDE
  16. FOSAMAX [Concomitant]
     Active Substance: ALENDRONATE SODIUM
  17. TRIAMCINOLONE [Concomitant]
     Active Substance: TRIAMCINOLONE
  18. DEXAMETHASONE [Concomitant]
     Active Substance: DEXAMETHASONE
  19. VINCRISTINE SULFATE [Concomitant]
     Active Substance: VINCRISTINE SULFATE
  20. PRAVASTATIN SODIUM [Concomitant]
     Active Substance: PRAVASTATIN SODIUM
  21. METHOTREXATE SODIUM [Concomitant]
     Active Substance: METHOTREXATE SODIUM
  22. MERCAPTOPURINE [Concomitant]
     Active Substance: MERCAPTOPURINE
  23. HYDROCHLOROTHIAZIDE\LOSARTAN POTASSIUM [Concomitant]
     Active Substance: HYDROCHLOROTHIAZIDE\LOSARTAN POTASSIUM
     Indication: Hypotension
  24. HYDROCHLOROTHIAZIDE\LOSARTAN POTASSIUM [Concomitant]
     Active Substance: HYDROCHLOROTHIAZIDE\LOSARTAN POTASSIUM
     Indication: Hypertension
  25. LEVOTHYROXINE [Concomitant]
     Active Substance: LEVOTHYROXINE
  26. ALENDRONATE SODIUM [Concomitant]
     Active Substance: ALENDRONATE SODIUM
  27. BUPROPION [Concomitant]
     Active Substance: BUPROPION
  28. TRAZODONE [Concomitant]
     Active Substance: TRAZODONE HYDROCHLORIDE
  29. SULFAMETHOXAZOLE\TRIMETHOPRIM [Concomitant]
     Active Substance: SULFAMETHOXAZOLE\TRIMETHOPRIM
  30. FEXOFENADINE [Concomitant]
     Active Substance: FEXOFENADINE HYDROCHLORIDE
  31. FLUTICASONE [Concomitant]
     Active Substance: FLUTICASONE
  32. FAMOTIDINE [Concomitant]
     Active Substance: FAMOTIDINE
  33. COLACE [Concomitant]
     Active Substance: DOCUSATE SODIUM
  34. SYNTHROID [Concomitant]
     Active Substance: LEVOTHYROXINE SODIUM
  35. FOLATE SODIUM [Concomitant]
     Active Substance: FOLATE SODIUM
  36. VITAMIN D3 [Concomitant]
     Active Substance: CHOLECALCIFEROL

REACTIONS (13)
  - Systemic lupus erythematosus [Unknown]
  - Autoimmune thyroiditis [Unknown]
  - Immunodeficiency [Unknown]
  - Cataract [Not Recovered/Not Resolved]
  - Pyrexia [Unknown]
  - Eczema [Unknown]
  - Weight increased [Unknown]
  - Dizziness [Unknown]
  - Hepatic enzyme increased [Unknown]
  - Tension headache [Unknown]
  - Product dose omission issue [Unknown]
  - Off label use [Unknown]
  - Visual impairment [Unknown]
